FAERS Safety Report 12305086 (Version 1)
Quarter: 2016Q2

REPORT INFORMATION
  Report Type: Spontaneous
  Country: US (occurrence: None)
  Receive Date: 20160425
  Receipt Date: 20160425
  Transmission Date: 20160815
  Serious: Yes (Hospitalization)
  Sender: FDA-Public Use
  Company Number: None

PATIENT
  Age: 43 Year
  Sex: Female
  Weight: 98.2 kg

DRUGS (5)
  1. MERCAPTOPURINE. [Suspect]
     Active Substance: MERCAPTOPURINE
     Dates: end: 20160418
  2. CYTARABINE. [Suspect]
     Active Substance: CYTARABINE
     Dates: end: 20160415
  3. METHOTREXATE [Suspect]
     Active Substance: METHOTREXATE
     Dates: end: 20160412
  4. CYCLOPHOSPHAMIDE. [Suspect]
     Active Substance: CYCLOPHOSPHAMIDE
     Dates: end: 20160405
  5. ONCASPAR [Suspect]
     Active Substance: PEGASPARGASE
     Dates: end: 20160419

REACTIONS (13)
  - Viral infection [None]
  - Diastolic dysfunction [None]
  - Post lumbar puncture syndrome [None]
  - Bacterial infection [None]
  - Tachycardia [None]
  - Neutropenic sepsis [None]
  - Pyrexia [None]
  - Feeling cold [None]
  - Petechiae [None]
  - Sneezing [None]
  - Nausea [None]
  - Myalgia [None]
  - Oral mucosal blistering [None]

NARRATIVE: CASE EVENT DATE: 20160421
